FAERS Safety Report 5907821-4 (Version None)
Quarter: 2008Q4

REPORT INFORMATION
  Report Type: 
  Country: None (occurrence: None)
  Receive Date: 20081003
  Receipt Date: 20080922
  Transmission Date: 20090506
  Serious: Yes (Hospitalization, Other)
  Sender: FDA-Public Use
  Company Number: CA-PFIZER INC-2008080306

PATIENT
  Age: 36 Year
  Sex: Female

DRUGS (6)
  1. LYRICA [Suspect]
     Indication: TRIGEMINAL NEURALGIA
     Dosage: TEXT:TDD:1200MG-1800MG
     Route: 048
  2. TYLENOL (CAPLET) [Suspect]
     Route: 048
  3. NAPROXEN [Concomitant]
  4. MEPERIDINE HYDROCHLORIDE [Concomitant]
  5. ALL OTHER THERAPEUTIC PRODUCTS [Concomitant]
  6. ANTIDEPRESSANTS [Concomitant]

REACTIONS (2)
  - HEPATIC FAILURE [None]
  - INTENTIONAL DRUG MISUSE [None]
